FAERS Safety Report 11230565 (Version 1)
Quarter: 2015Q2

REPORT INFORMATION
  Report Type: Spontaneous
  Country: US (occurrence: None)
  Receive Date: 20150629
  Receipt Date: 20150629
  Transmission Date: 20150821
  Serious: Yes (Hospitalization)
  Sender: FDA-Public Use
  Company Number: None

PATIENT
  Age: 16 Year
  Sex: Male
  Weight: 108.86 kg

DRUGS (2)
  1. ADVIL [Concomitant]
     Active Substance: IBUPROFEN
  2. COMPAZINE [Suspect]
     Active Substance: PROCHLORPERAZINE MALEATE
     Indication: MIGRAINE
     Dosage: GIVEN TWICE IN ER VIA IV
     Route: 042

REACTIONS (5)
  - Dyskinesia [None]
  - Chest pain [None]
  - Unevaluable event [None]
  - Presyncope [None]
  - Seizure [None]

NARRATIVE: CASE EVENT DATE: 20150622
